FAERS Safety Report 7737003-5 (Version None)
Quarter: 2011Q3

REPORT INFORMATION
  Report Type: 
  Country: None (occurrence: None)
  Receive Date: 20110908
  Receipt Date: 20110826
  Transmission Date: 20111222
  Serious: Yes (Hospitalization, Other)
  Sender: FDA-Public Use
  Company Number: US-ELI_LILLY_AND_COMPANY-US201108003889

PATIENT
  Sex: Male

DRUGS (8)
  1. COUMADIN [Concomitant]
     Indication: THROMBOSIS
  2. TESTOSTERONE [Concomitant]
  3. IMURAN [Concomitant]
  4. FORTEO [Suspect]
     Indication: OSTEOPOROSIS
     Dosage: 20 UG, QD
     Route: 065
  5. FORTEO [Suspect]
     Dosage: 20 UG, QD
     Route: 065
  6. PREDNISONE [Concomitant]
  7. CALCIUM CARBONATE [Concomitant]
  8. VITAMIN TAB [Concomitant]

REACTIONS (5)
  - THROMBOSIS [None]
  - PLASMAPHERESIS [None]
  - RETCHING [None]
  - SINUS DISORDER [None]
  - INJECTION SITE HAEMATOMA [None]
